FAERS Safety Report 4533411-4 (Version None)
Quarter: 2004Q4

REPORT INFORMATION
  Report Type: 
  Country: None (occurrence: None)
  Receive Date: 20041221
  Receipt Date: 20041029
  Transmission Date: 20050328
  Serious: Yes (Death)
  Sender: FDA-Public Use
  Company Number: US-ROCHE-385106

PATIENT
  Age: 54 Year
  Sex: Female
  Weight: 89.4 kg

DRUGS (1)
  1. XELODA [Suspect]
     Dosage: STRENTH REPORTED AS 2000 MG.  FOURTEEN DAYS ON SEVEN DAYS OFF.
     Route: 048

REACTIONS (2)
  - BREAST CANCER [None]
  - PULMONARY EMBOLISM [None]
